FAERS Safety Report 24794895 (Version 1)
Quarter: 2024Q4

REPORT INFORMATION
  Report Type: Spontaneous
  Country: US (occurrence: US)
  Receive Date: 20241231
  Receipt Date: 20241231
  Transmission Date: 20250115
  Serious: Yes (Other)
  Sender: PURDUE
  Company Number: US-PURDUE PHARMA-USA-2024-0314334

PATIENT
  Age: 44 Year
  Sex: Male

DRUGS (1)
  1. BUPRENORPHINE [Suspect]
     Active Substance: BUPRENORPHINE
     Indication: Product used for unknown indication
     Dosage: UNK
     Route: 065

REACTIONS (7)
  - Road traffic accident [Unknown]
  - Impaired driving ability [Unknown]
  - Somnolence [Unknown]
  - Drug screen positive [Unknown]
  - Homicide [Unknown]
  - Glassy eyes [Unknown]
  - Dysarthria [Unknown]

NARRATIVE: CASE EVENT DATE: 20231001
